FAERS Safety Report 11679308 (Version 3)
Quarter: 2015Q4

REPORT INFORMATION
  Report Type: Spontaneous
  Country: US (occurrence: US)
  Receive Date: 20151027
  Receipt Date: 20151110
  Transmission Date: 20160304
  Serious: No
  Sender: FDA-Public Use
  Company Number: US-ELI_LILLY_AND_COMPANY-US201011003734

PATIENT
  Age: 74 Year
  Sex: Female

DRUGS (8)
  1. FORTEO [Suspect]
     Active Substance: TERIPARATIDE
     Dosage: 20 UG, QOD
     Route: 058
  2. FORTEO [Suspect]
     Active Substance: TERIPARATIDE
     Dosage: 20 UG, QOD
     Route: 058
  3. CALCIUM [Concomitant]
     Active Substance: CALCIUM
     Dosage: UNK, DAILY (1/D)
  4. PLAVIX [Concomitant]
     Active Substance: CLOPIDOGREL BISULFATE
  5. FORTEO [Suspect]
     Active Substance: TERIPARATIDE
     Indication: OSTEOPOROSIS
     Dosage: 20 UG, QD
     Route: 058
     Dates: start: 20100928
  6. PRAVACHOL [Concomitant]
     Active Substance: PRAVASTATIN SODIUM
     Indication: BLOOD CHOLESTEROL
  7. CALCIUM [Concomitant]
     Active Substance: CALCIUM
     Dosage: UNK, 2/D
  8. FORTEO [Suspect]
     Active Substance: TERIPARATIDE
     Dosage: 20 UG, QOD
     Route: 058

REACTIONS (14)
  - Haemoglobin increased [Unknown]
  - Pain [Unknown]
  - Pain in extremity [Unknown]
  - Injection site pruritus [Unknown]
  - Blood calcium increased [Recovered/Resolved with Sequelae]
  - Arthralgia [Unknown]
  - Inappropriate schedule of drug administration [Not Recovered/Not Resolved]
  - Bone pain [Unknown]
  - Injection site erythema [Unknown]
  - Injection site bruising [Unknown]
  - Mean cell volume abnormal [Unknown]
  - Mean cell haemoglobin [Unknown]
  - Haematocrit increased [Unknown]
  - Arthritis [Unknown]

NARRATIVE: CASE EVENT DATE: 201011
